FAERS Safety Report 5188711-4 (Version None)
Quarter: 2006Q4

REPORT INFORMATION
  Report Type: 
  Country: None (occurrence: None)
  Receive Date: 20061214
  Receipt Date: 20061128
  Transmission Date: 20070319
  Serious: Yes (Death, Hospitalization, Other)
  Sender: FDA-Public Use
  Company Number: 2006149944

PATIENT
  Sex: Male

DRUGS (3)
  1. BEXTRA [Suspect]
     Dates: start: 20040101, end: 20040301
  2. CELEBREX [Suspect]
     Dates: start: 20041001, end: 20051001
  3. VIOXX [Suspect]
     Dates: start: 20040301, end: 20041001

REACTIONS (2)
  - CEREBROVASCULAR ACCIDENT [None]
  - MYOCARDIAL INFARCTION [None]
